FAERS Safety Report 9325615 (Version 1)
Quarter: 2013Q2

REPORT INFORMATION
  Report Type: Spontaneous
  Country: US (occurrence: None)
  Receive Date: 20130531
  Receipt Date: 20130531
  Transmission Date: 20140414
  Serious: No
  Sender: FDA-Public Use
  Company Number: None

PATIENT
  Age: 46 Year
  Sex: Male

DRUGS (1)
  1. COPAXONE [Suspect]
     Indication: MULTIPLE SCLEROSIS
     Route: 058
     Dates: start: 20120327, end: 20130529

REACTIONS (6)
  - Application site burn [None]
  - Application site discolouration [None]
  - Application site infection [None]
  - Contusion [None]
  - Skin exfoliation [None]
  - Tenderness [None]
